FAERS Safety Report 16208508 (Version 1)
Quarter: 2019Q2

REPORT INFORMATION
  Report Type: Spontaneous
  Country: AU (occurrence: AU)
  Receive Date: 20190417
  Receipt Date: 20190417
  Transmission Date: 20190711
  Serious: Yes (Hospitalization, Other)
  Sender: FDA-Public Use
  Company Number: AU-COLLEGIUM PHARMACEUTICAL, INC.-AU-2019COL000485

PATIENT
  Age: 48 Year
  Sex: Male
  Weight: 115 kg

DRUGS (7)
  1. PARACETAMOL/CODEINE [Concomitant]
     Active Substance: ACETAMINOPHEN\CODEINE PHOSPHATE
     Indication: PRODUCT USED FOR UNKNOWN INDICATION
     Dosage: UNK
  2. IBUPROFEN. [Concomitant]
     Active Substance: IBUPROFEN
     Indication: PROCEDURAL PAIN
     Dosage: UNK
     Dates: start: 2018
  3. CEPHALOXIN [Concomitant]
     Active Substance: CEPHALEXIN
     Indication: ARTHRITIS INFECTIVE
     Dosage: UNK
  4. PARACETAMOL [Concomitant]
     Active Substance: ACETAMINOPHEN
     Indication: PROCEDURAL PAIN
     Dosage: UNK
     Dates: start: 2018
  5. NALOXONE HYDROCHLORIDE W/OXYCODONE HYDROCHLOR [Concomitant]
     Indication: PRODUCT USED FOR UNKNOWN INDICATION
     Dosage: UNK
  6. TRAMAL [Suspect]
     Active Substance: TRAMADOL
     Indication: PROCEDURAL PAIN
     Dosage: UNK, AS NEEDED
     Dates: start: 2018
  7. TAPENTADOL EXTENDED RELEASE [Suspect]
     Active Substance: TAPENTADOL
     Indication: PROCEDURAL PAIN
     Dosage: 50 MG, BID
     Dates: start: 2018, end: 2018

REACTIONS (5)
  - Respiratory failure [Unknown]
  - Overdose [Unknown]
  - Cyanosis [Unknown]
  - Unresponsive to stimuli [Unknown]
  - Sleep apnoea syndrome [Unknown]

NARRATIVE: CASE EVENT DATE: 2018
